FAERS Safety Report 4486726-2 (Version None)
Quarter: 2004Q4

REPORT INFORMATION
  Report Type: 
  Country: None (occurrence: None)
  Receive Date: 20041021
  Receipt Date: 20041006
  Transmission Date: 20050328
  Serious: Yes (Hospitalization)
  Sender: FDA-Public Use
  Company Number: 2004-00612

PATIENT
  Sex: Male

DRUGS (1)
  1. VELCADE [Suspect]
     Indication: MULTIPLE MYELOMA
     Dates: start: 20040927

REACTIONS (5)
  - ABDOMINAL PAIN [None]
  - ASPARTATE AMINOTRANSFERASE INCREASED [None]
  - BLOOD ELECTROLYTES ABNORMAL [None]
  - HYPERHIDROSIS [None]
  - TACHYCARDIA [None]
